FAERS Safety Report 12721221 (Version 1)
Quarter: 2016Q3

REPORT INFORMATION
  Report Type: Spontaneous
  Country: US (occurrence: US)
  Receive Date: 20160906
  Receipt Date: 20160906
  Transmission Date: 20161109
  Serious: Yes (Other)
  Sender: FDA-Public Use
  Company Number: None

PATIENT
  Age: 61 Year
  Sex: Female
  Weight: 59.88 kg

DRUGS (7)
  1. BENZONATATE. [Suspect]
     Active Substance: BENZONATATE
     Indication: BRONCHITIS
     Dosage: 30 PERLES
     Route: 048
     Dates: start: 20160826, end: 20160830
  2. PROZAC [Concomitant]
     Active Substance: FLUOXETINE HYDROCHLORIDE
  3. BENZONATATE. [Suspect]
     Active Substance: BENZONATATE
     Indication: COUGH
     Dosage: 30 PERLES
     Route: 048
     Dates: start: 20160826, end: 20160830
  4. MULTI VITAMIN MINERAL [Concomitant]
  5. VITAMIN D3 [Concomitant]
     Active Substance: CHOLECALCIFEROL
  6. BENZONATATE. [Suspect]
     Active Substance: BENZONATATE
     Indication: PNEUMONIA
     Dosage: 30 PERLES
     Route: 048
     Dates: start: 20160826, end: 20160830
  7. VITAMIN C [Concomitant]
     Active Substance: ASCORBIC ACID

REACTIONS (1)
  - Urinary incontinence [None]

NARRATIVE: CASE EVENT DATE: 20160829
